FAERS Safety Report 9719309 (Version 1)
Quarter: 2013Q4

REPORT INFORMATION
  Report Type: Spontaneous
  Country: FR (occurrence: FR)
  Receive Date: 20131127
  Receipt Date: 20131127
  Transmission Date: 20140711
  Serious: Yes (Life-Threatening, Hospitalization)
  Sender: FDA-Public Use
  Company Number: PHHY2013FR136740

PATIENT
  Sex: Female

DRUGS (8)
  1. LEPONEX [Suspect]
     Dosage: 37.5 MG, QD
     Dates: end: 20131115
  2. SERESTA [Suspect]
     Indication: AGITATION
     Dosage: 10 MG, QD
     Dates: end: 20131115
  3. DEROXAT [Concomitant]
     Dosage: 20 MG, QD
  4. HEPTAMYL [Concomitant]
     Dosage: UNK
  5. INIPOMP [Concomitant]
     Dosage: UNK
  6. SINEMET [Concomitant]
     Dosage: UNK
  7. MODOPAR [Concomitant]
     Dosage: UNK
  8. DAFALGAN [Concomitant]
     Dosage: UNK

REACTIONS (4)
  - Hypothermia [Recovered/Resolved]
  - Bradycardia [Not Recovered/Not Resolved]
  - Hypotension [Recovered/Resolved]
  - Hallucination [Unknown]
